FAERS Safety Report 5653645-5 (Version None)
Quarter: 2008Q1

REPORT INFORMATION
  Report Type: 
  Country: None (occurrence: None)
  Receive Date: 20080306
  Receipt Date: 20080228
  Transmission Date: 20080703
  Serious: Yes (Death)
  Sender: FDA-Public Use
  Company Number: US-ELI_LILLY_AND_COMPANY-US200802006851

PATIENT
  Age: 62 Year
  Sex: Female

DRUGS (1)
  1. XIGRIS [Suspect]
     Indication: PNEUMOCOCCAL SEPSIS

REACTIONS (1)
  - ADRENAL HAEMORRHAGE [None]
